FAERS Safety Report 13903614 (Version 2)
Quarter: 2018Q2

REPORT INFORMATION
  Report Type: Spontaneous
  Country: FR (occurrence: FR)
  Receive Date: 20170824
  Receipt Date: 20180406
  Transmission Date: 20180711
  Serious: Yes (Life-Threatening, Hospitalization)
  Sender: FDA-Public Use
  Company Number: FR-ACCORD-057508

PATIENT
  Age: 78 Year
  Sex: Male
  Weight: 69.5 kg

DRUGS (3)
  1. FLUOROURACIL ACCORD [Suspect]
     Active Substance: FLUOROURACIL
     Indication: GASTRIC ADENOMA
     Dosage: DURING 48 HOURS
     Route: 042
     Dates: start: 20170711
  2. OXALIPLATIN KABI [Concomitant]
     Active Substance: OXALIPLATIN
     Route: 042
     Dates: start: 20170711, end: 20170711
  3. FOLINIC ACID [Concomitant]
     Active Substance: LEUCOVORIN
     Route: 042
     Dates: start: 20170711, end: 20170711

REACTIONS (7)
  - Endocarditis [Not Recovered/Not Resolved]
  - Bone marrow failure [Recovering/Resolving]
  - Asthenia [Unknown]
  - Mucosal inflammation [Not Recovered/Not Resolved]
  - Chest discomfort [Unknown]
  - Erythema [Unknown]
  - Medication error [Unknown]

NARRATIVE: CASE EVENT DATE: 20170717
